FAERS Safety Report 9204702 (Version 2)
Quarter: 2013Q4

REPORT INFORMATION
  Report Type: Spontaneous
  Country: US (occurrence: US)
  Receive Date: 20130402
  Receipt Date: 20131101
  Transmission Date: 20140711
  Serious: Yes (Hospitalization, Disabling, Other)
  Sender: FDA-Public Use
  Company Number: US-BAYER-2013-039208

PATIENT
  Age: 44 Year
  Sex: Female
  Weight: 120.18 kg

DRUGS (7)
  1. YAZ [Suspect]
     Dosage: UNK
  2. YASMIN [Suspect]
  3. OCELLA [Suspect]
  4. SYMBICORT [Concomitant]
     Dosage: UNK
     Dates: start: 20110919
  5. NASONEX [Concomitant]
     Dosage: UNK
     Dates: start: 20110919
  6. ZOLOFT [Concomitant]
     Dosage: 25 MG, UNK
     Dates: start: 20110919
  7. CETIRIZINE [Concomitant]

REACTIONS (9)
  - Gallbladder disorder [None]
  - Injury [None]
  - Pain [None]
  - Emotional distress [None]
  - Anxiety [None]
  - Anhedonia [None]
  - Deformity [None]
  - Cholecystitis chronic [None]
  - Ejection fraction decreased [None]
